FAERS Safety Report 10171176 (Version 1)
Quarter: 2014Q2

REPORT INFORMATION
  Report Type: Spontaneous
  Country: US (occurrence: None)
  Receive Date: 20140425
  Receipt Date: 20140425
  Transmission Date: 20141212
  Serious: Yes (Other)
  Sender: FDA-Public Use
  Company Number: 2013MP100637

PATIENT
  Sex: Female

DRUGS (2)
  1. ADCETRIS [Suspect]
     Indication: NON-HODGKIN^S LYMPHOMA REFRACTORY
  2. ADCETRIS [Suspect]
     Indication: DISEASE RECURRENCE

REACTIONS (1)
  - Pregnancy [None]
